FAERS Safety Report 16986697 (Version 1)
Quarter: 2019Q4

REPORT INFORMATION
  Report Type: Spontaneous
  Country: US (occurrence: US)
  Receive Date: 20191003
  Receipt Date: 20191003
  Transmission Date: 20200122
  Serious: Yes (Hospitalization, Other)
  Sender: FDA-Public Use
  Company Number: None

PATIENT
  Age: 57 Year
  Sex: Female

DRUGS (13)
  1. ZINC. [Concomitant]
     Active Substance: ZINC
  2. VITAMIN B12 [Concomitant]
     Active Substance: CYANOCOBALAMIN
  3. VITAMIN C [Concomitant]
     Active Substance: ASCORBIC ACID
  4. BIOTIN [Suspect]
     Active Substance: BIOTIN
  5. LYRICA [Concomitant]
     Active Substance: PREGABALIN
  6. HCTZ [Concomitant]
     Active Substance: HYDROCHLOROTHIAZIDE
  7. BIOTIN [Concomitant]
     Active Substance: BIOTIN
  8. POTASSIUM [Concomitant]
     Active Substance: POTASSIUM
  9. ARMOUR THYROID [Suspect]
     Active Substance: THYROID, PORCINE
  10. PROBIOTICS [Concomitant]
     Active Substance: PROBIOTICS NOS
  11. MULTI-VITAMIN [Concomitant]
     Active Substance: .ALPHA.-TOCOPHEROL ACETATE, DL-\ASCORBIC ACID\CYANOCOBALAMIN\FLUORIDE ION\FOLIC ACID\NIACIN\PYRIDOXINE\RIBOFLAVIN\THIAMINE\VITAMIN A\VITAMIN D
  12. CALCIUM/VIT D/VIT K [Concomitant]
  13. MAGNESIUM [Concomitant]
     Active Substance: MAGNESIUM

REACTIONS (19)
  - Laboratory test abnormal [None]
  - Painful respiration [None]
  - Blood creatine phosphokinase increased [None]
  - Chest pain [None]
  - Fatigue [None]
  - Body temperature decreased [None]
  - Loss of personal independence in daily activities [None]
  - Rhabdomyolysis [None]
  - Hypopnoea [None]
  - Ataxia [None]
  - Pain [None]
  - Decreased appetite [None]
  - Renal function test abnormal [None]
  - Myalgia [None]
  - Insomnia [None]
  - Headache [None]
  - Hyperhidrosis [None]
  - Laboratory test interference [None]
  - Muscular weakness [None]
